FAERS Safety Report 9035787 (Version 1)
Quarter: 2013Q1

REPORT INFORMATION
  Report Type: Report from Study
  Country: US (occurrence: US)
  Receive Date: 20130129
  Receipt Date: 20130129
  Transmission Date: 20140127
  Serious: No
  Sender: FDA-Public Use
  Company Number: US-ABBOTT-12P-163-0927257-00

PATIENT
  Age: 54 Year
  Sex: Female

DRUGS (21)
  1. HUMIRA 40 MG/0.8 ML PEN [Suspect]
     Indication: CROHN^S DISEASE
     Dates: start: 200904
  2. PROZAC [Concomitant]
     Indication: DEPRESSION
     Dosage: 40 MG DAILY
  3. OMEPRAZOLE [Concomitant]
     Indication: GASTROOESOPHAGEAL REFLUX DISEASE
     Dosage: 20 MG DAILY
  4. ATENOLOL [Concomitant]
     Indication: HYPERTENSION
     Dosage: 50 MG DAILY
  5. LASIX [Concomitant]
     Indication: HYPERTENSION
     Dosage: 20 MG DAILY
  6. ALTACE [Concomitant]
     Indication: PROPHYLAXIS
     Dosage: 5 MG DAILY
  7. FOLIC ACID [Concomitant]
     Indication: PRODUCT USED FOR UNKNOWN INDICATION
     Dosage: 800 MG DAILY
  8. FISH OIL [Concomitant]
     Indication: PRODUCT USED FOR UNKNOWN INDICATION
     Dosage: 3 CAPS DAILY
  9. ASA [Concomitant]
     Indication: PRODUCT USED FOR UNKNOWN INDICATION
     Dosage: 81 MG DAILY
  10. OVER THE COUNTER EYE DROPS [Concomitant]
     Indication: DRY EYE
     Dosage: DAILY
  11. RESTASIS [Concomitant]
     Indication: DRY EYE
     Dosage: 1 DROP EACH EYE, TWICE DAILY
  12. SINGULAR [Concomitant]
     Indication: ASTHMA
     Dosage: 10 MG DAILY
  13. SINGULAR [Concomitant]
     Indication: HYPERSENSITIVITY
  14. LANTUS INSULIN [Concomitant]
     Indication: DIABETES MELLITUS
     Dosage: AT BEDTIME
  15. HUMULIN INSULIN [Concomitant]
     Indication: DIABETES MELLITUS
     Dosage: 30 MINUTES PRIOR TO MEAL
  16. MULTIVITAMIN [Concomitant]
     Indication: PRODUCT USED FOR UNKNOWN INDICATION
     Dosage: DAILY
  17. BENTYL [Concomitant]
     Indication: CROHN^S DISEASE
     Dosage: EVERY 8 HOURS
  18. ANTISPASMODIC [Concomitant]
     Indication: ABDOMINAL PAIN UPPER
     Dosage: DAILY
  19. ASMANEX [Concomitant]
     Indication: PRODUCT USED FOR UNKNOWN INDICATION
     Dosage: 440 MCG, 2 PUFFS TWICE DAILY
  20. POTASSIUM OVER THE COUNTER [Concomitant]
     Indication: PRODUCT USED FOR UNKNOWN INDICATION
  21. DUAL NEBULIZER [Concomitant]
     Indication: ASTHMA
     Dosage: THREE TIMES PER DAY

REACTIONS (4)
  - Blood cholesterol increased [Recovering/Resolving]
  - Back pain [Recovering/Resolving]
  - Asthma [Recovering/Resolving]
  - Herpes zoster [Recovering/Resolving]
